FAERS Safety Report 7586695-2 (Version None)
Quarter: 2011Q3

REPORT INFORMATION
  Report Type: 
  Country: None (occurrence: None)
  Receive Date: 20110701
  Receipt Date: 20110616
  Transmission Date: 20111222
  Serious: Yes (Hospitalization, Other)
  Sender: FDA-Public Use
  Company Number: US-BAYER-201041455NA

PATIENT
  Sex: Female
  Weight: 65.76 kg

DRUGS (13)
  1. DROSPIRENONE AND ETHINYL ESTRADIOL [Suspect]
  2. YASMIN [Suspect]
     Indication: OVARIAN CYST
     Dosage: UNK
     Dates: start: 20020101, end: 20080101
  3. LEXAPRO [Concomitant]
  4. PREVACID [Concomitant]
  5. ZOFRAN [Concomitant]
  6. IMITREX [Concomitant]
     Indication: MIGRAINE
  7. YAZ [Suspect]
     Indication: OVARIAN CYST
     Dosage: UNK
     Dates: start: 20020101, end: 20080101
  8. MAXALT [Concomitant]
     Indication: MIGRAINE
  9. MARIJUANA [Concomitant]
     Indication: INSOMNIA
  10. PERCOCET [Concomitant]
  11. MARIJUANA [Concomitant]
     Indication: ANXIETY
     Dosage: DAILY
  12. LORTAB [Concomitant]
     Indication: MIGRAINE
  13. XANAX [Concomitant]

REACTIONS (5)
  - GALLBLADDER DISORDER [None]
  - ABDOMINAL PAIN [None]
  - NAUSEA [None]
  - VOMITING [None]
  - BILIARY DYSKINESIA [None]
